FAERS Safety Report 24764881 (Version 1)
Quarter: 2024Q4

REPORT INFORMATION
  Report Type: Spontaneous
  Country: DE (occurrence: DE)
  Receive Date: 20241223
  Receipt Date: 20241223
  Transmission Date: 20250115
  Serious: Yes (Other)
  Sender: ALKEM
  Company Number: DE-ALKEM LABORATORIES LIMITED-DE-ALKEM-2024-26071

PATIENT
  Sex: Female

DRUGS (3)
  1. PREGABALIN [Suspect]
     Active Substance: PREGABALIN
     Indication: Generalised anxiety disorder
     Dosage: 150 GRAM
     Route: 065
  2. PREGABALIN [Suspect]
     Active Substance: PREGABALIN
     Indication: Panic disorder
     Dosage: 200 GRAM
     Route: 065
  3. PREGABALIN [Suspect]
     Active Substance: PREGABALIN
     Dosage: 175 GRAM
     Route: 065

REACTIONS (10)
  - Foot fracture [Recovered/Resolved with Sequelae]
  - Tension [Unknown]
  - Musculoskeletal stiffness [Unknown]
  - Fall [Unknown]
  - Hyperventilation [Recovering/Resolving]
  - Pain [Unknown]
  - Chest discomfort [Recovering/Resolving]
  - Dyspnoea [Recovering/Resolving]
  - Gait disturbance [Unknown]
  - Therapeutic product effect incomplete [Unknown]
